FAERS Safety Report 5254080-4 (Version None)
Quarter: 2007Q1

REPORT INFORMATION
  Report Type: 
  Country: None (occurrence: None)
  Receive Date: 20070302
  Receipt Date: 20070215
  Transmission Date: 20070707
  Serious: Yes (Other)
  Sender: FDA-Public Use
  Company Number: PHEH2007US02007

PATIENT
  Age: 78 Year
  Sex: Male

DRUGS (2)
  1. ZOMETA [Suspect]
     Indication: PROSTATE CANCER
     Dosage: UNK, Q MONTH
     Dates: end: 20070214
  2. PREDNISONE [Concomitant]
     Indication: ASTHMA
     Dosage: 10 MG, QD
     Dates: start: 19970101

REACTIONS (6)
  - AORTIC STENOSIS [None]
  - CARDIOMEGALY [None]
  - DYSPNOEA [None]
  - GAIT DISTURBANCE [None]
  - LUNG NEOPLASM [None]
  - PLEURAL FIBROSIS [None]
